FAERS Safety Report 11686473 (Version 1)
Quarter: 2015Q4

REPORT INFORMATION
  Report Type: Spontaneous
  Country: FR (occurrence: FR)
  Receive Date: 20151030
  Receipt Date: 20151030
  Transmission Date: 20160304
  Serious: Yes (Death, Life-Threatening)
  Sender: FDA-Public Use
  Company Number: FR-BAXTER-2015BAX057735

PATIENT
  Sex: Male

DRUGS (15)
  1. VINCRISTINE HOSPIRA [Suspect]
     Active Substance: VINCRISTINE
     Dosage: 2 COURSES OF VI
     Route: 042
     Dates: start: 20120224, end: 201208
  2. ETOPOSIDE TEVA [Suspect]
     Active Substance: ETOPOSIDE
     Indication: EWING^S SARCOMA
     Dosage: 6 COURSES OF VIDE
     Route: 042
     Dates: start: 20110621, end: 201110
  3. COSMEGEN [Suspect]
     Active Substance: DACTINOMYCIN
     Dosage: 2 OTHER COURSES OF VAI
     Route: 042
  4. HOLOXAN 3 G, LYOPHILISAT POUR SOLUTION INJECTABLE [Suspect]
     Active Substance: IFOSFAMIDE
     Dosage: 18 G/M2, 4 COURSES OF VAI
     Route: 042
     Dates: start: 20111215, end: 20120217
  5. COSMEGEN [Suspect]
     Active Substance: DACTINOMYCIN
     Indication: PRODUCT USED FOR UNKNOWN INDICATION
     Dosage: 4 COURSES OF VAI
     Route: 042
     Dates: start: 20111215, end: 20120217
  6. UROMITEXAN 5 G/50 ML, SOLUTION INJECTABLE POUR PERFUSION EN FLACON [Suspect]
     Active Substance: MESNA
     Indication: PROPHYLAXIS
     Route: 042
     Dates: start: 20110621, end: 201208
  7. HOLOXAN 3 G, LYOPHILISAT POUR SOLUTION INJECTABLE [Suspect]
     Active Substance: IFOSFAMIDE
     Indication: EWING^S SARCOMA
     Dosage: 3 G/M2, 6 COURSES OF VIDE
     Route: 042
     Dates: start: 20110621, end: 201110
  8. COSMEGEN [Suspect]
     Active Substance: DACTINOMYCIN
     Route: 042
     Dates: end: 201208
  9. COSMEGEN [Suspect]
     Active Substance: DACTINOMYCIN
     Dosage: 4 DOSES
     Route: 042
  10. HOLOXAN 3 G, LYOPHILISAT POUR SOLUTION INJECTABLE [Suspect]
     Active Substance: IFOSFAMIDE
     Dosage: 2 COURSES OF VI
     Route: 042
     Dates: start: 20120224, end: 201208
  11. HOLOXAN 3 G, LYOPHILISAT POUR SOLUTION INJECTABLE [Suspect]
     Active Substance: IFOSFAMIDE
     Dosage: 2 OTHER COURSES OF VAI
     Route: 042
  12. VINCRISTINE HOSPIRA [Suspect]
     Active Substance: VINCRISTINE
     Indication: EWING^S SARCOMA
     Dosage: 1.5 G/M2, 6 COURSES OF VIDE
     Route: 042
     Dates: start: 20110621, end: 201110
  13. VINCRISTINE HOSPIRA [Suspect]
     Active Substance: VINCRISTINE
     Dosage: 4 COURSES OF VAI
     Route: 042
     Dates: start: 20111215, end: 20120217
  14. VINCRISTINE HOSPIRA [Suspect]
     Active Substance: VINCRISTINE
     Dosage: 2 OTHER COURSES OF VAI
     Route: 042
  15. DOXORUBICINE EBEWE [Suspect]
     Active Substance: DOXORUBICIN HYDROCHLORIDE
     Indication: EWING^S SARCOMA
     Dosage: 6 COURSES OF VIDE
     Route: 042
     Dates: start: 20110621, end: 201110

REACTIONS (1)
  - Acute myeloid leukaemia [Fatal]

NARRATIVE: CASE EVENT DATE: 2014
